FAERS Safety Report 5460621-4 (Version None)
Quarter: 2007Q3

REPORT INFORMATION
  Report Type: 
  Country: None (occurrence: None)
  Receive Date: 20070918
  Receipt Date: 20070905
  Transmission Date: 20080115
  Serious: Yes (Hospitalization)
  Sender: FDA-Public Use
  Company Number: IT-JNJFOC-20070502847

PATIENT
  Age: 76 Year
  Sex: Male
  Weight: 77 kg

DRUGS (5)
  1. DECITABINE (DECITABINE) LYOPHILIZED POWDER [Suspect]
     Indication: MYELODYSPLASTIC SYNDROME
     Dosage: INTRAVENOUS
     Route: 042
  2. DECITABINE (DECITABINE) LYOPHILIZED POWDER [Suspect]
  3. FLUCONAZOLE (FLUCONAZOLE) UNSPECIFIED [Concomitant]
  4. AC. TRANEXAMICO (TRANEXAMIC ACID) UNSPECIFIED [Concomitant]
  5. FILGRASTIM (FILGRASTIM) UNSPECIFIED [Concomitant]

REACTIONS (5)
  - FATIGUE [None]
  - NAUSEA [None]
  - NEUTROPENIA [None]
  - PNEUMONITIS [None]
  - PYREXIA [None]
